FAERS Safety Report 13670244 (Version 2)
Quarter: 2017Q4

REPORT INFORMATION
  Report Type: Spontaneous
  Country: CA (occurrence: CA)
  Receive Date: 20170620
  Receipt Date: 20171128
  Transmission Date: 20180320
  Serious: Yes (Hospitalization, Other)
  Sender: FDA-Public Use
  Company Number: CA-SA-2017SA105878

PATIENT
  Age: 59 Year
  Sex: Female

DRUGS (12)
  1. PREDNISONE. [Suspect]
     Active Substance: PREDNISONE
     Indication: PAIN
     Route: 065
  2. METHOTREXATE. [Suspect]
     Active Substance: METHOTREXATE
     Indication: PAIN
     Route: 065
  3. CELEBREX [Suspect]
     Active Substance: CELECOXIB
     Route: 065
  4. ENBREL [Suspect]
     Active Substance: ETANERCEPT
     Indication: RHEUMATOID ARTHRITIS
     Route: 058
     Dates: start: 200904, end: 200909
  5. HYDROMORPH CONTIN [Concomitant]
     Active Substance: HYDROMORPHONE
     Route: 065
  6. ENBREL [Suspect]
     Active Substance: ETANERCEPT
     Indication: PAIN
     Route: 058
     Dates: start: 200904, end: 200909
  7. FUROSEMIDE. [Concomitant]
     Active Substance: FUROSEMIDE
  8. PLAQUENIL [Suspect]
     Active Substance: HYDROXYCHLOROQUINE SULFATE
     Indication: PAIN
     Route: 048
  9. DILAUDID [Concomitant]
     Active Substance: HYDROMORPHONE HYDROCHLORIDE
  10. ARAVA [Suspect]
     Active Substance: LEFLUNOMIDE
     Route: 048
     Dates: end: 201003
  11. LYRICA [Concomitant]
     Active Substance: PREGABALIN
     Route: 065
  12. ACTEMRA [Concomitant]
     Active Substance: TOCILIZUMAB

REACTIONS (28)
  - Insomnia [Unknown]
  - Amnesia [Unknown]
  - Spinal deformity [Unknown]
  - Fibromyalgia [Unknown]
  - Encephalitis brain stem [Unknown]
  - Fall [Unknown]
  - Cardiovascular disorder [Unknown]
  - Scar [Unknown]
  - Depressed mood [Unknown]
  - Cystitis [Unknown]
  - Deformity [Unknown]
  - Dermatitis [Unknown]
  - Sepsis [Unknown]
  - Joint destruction [Unknown]
  - Loss of personal independence in daily activities [Unknown]
  - Immune system disorder [Unknown]
  - Seizure [Unknown]
  - Rib fracture [Unknown]
  - Encephalitis [Unknown]
  - Peripheral swelling [Unknown]
  - Immunodeficiency [Unknown]
  - Memory impairment [Unknown]
  - Pain [Unknown]
  - Psychiatric symptom [Unknown]
  - Vomiting [Recovered/Resolved]
  - Rheumatoid arthritis [Unknown]
  - Immobile [Unknown]
  - Drug ineffective [Unknown]

NARRATIVE: CASE EVENT DATE: 2010
